FAERS Safety Report 10205174 (Version 1)
Quarter: 2014Q2

REPORT INFORMATION
  Report Type: Report from Study
  Country: IT (occurrence: IT)
  Receive Date: 20140529
  Receipt Date: 20140529
  Transmission Date: 20141212
  Serious: Yes (Other)
  Sender: FDA-Public Use
  Company Number: IT-SA-2014SA065808

PATIENT
  Sex: Male

DRUGS (8)
  1. ANTI-THYMOCYTE GLOBULIN (RABBIT) [Suspect]
     Indication: BONE MARROW CONDITIONING REGIMEN
     Dosage: DOSE : 2.5 MG/KG ADMINISTERED ON DAYS -4 TO -2
     Route: 065
  2. CYCLOPHOSPHAMIDE [Suspect]
     Indication: BONE MARROW CONDITIONING REGIMEN
     Dosage: DOSE : 50 MG/KG/ DAY ON DAYS-5 TO -2
     Route: 065
  3. CYCLOPHOSPHAMIDE [Concomitant]
     Indication: HAEMATOPOIETIC STEM CELL MOBILISATION
     Dosage: DOSE:1.5 GRAM(S)/SQUARE METER
  4. GRANULOCYTE COLONY-STIMULATING FACTOR NOS [Concomitant]
  5. ANTIEMETICS AND ANTINAUSEANTS [Concomitant]
  6. LEVOFLOXACIN [Concomitant]
     Indication: ANTIBIOTIC PROPHYLAXIS
  7. FLUCONAZOLE [Concomitant]
     Indication: ANTIBIOTIC PROPHYLAXIS
  8. ACYCLOVIR [Concomitant]
     Indication: ANTIVIRAL PROPHYLAXIS

REACTIONS (3)
  - Haematuria [Recovered/Resolved]
  - BK virus infection [Recovered/Resolved]
  - Off label use [Unknown]
